FAERS Safety Report 7570117-1 (Version None)
Quarter: 2011Q2

REPORT INFORMATION
  Report Type: 
  Country: None (occurrence: None)
  Receive Date: 20110624
  Receipt Date: 20110616
  Transmission Date: 20111010
  Serious: Yes (Life-Threatening, Hospitalization, Other)
  Sender: FDA-Public Use
  Company Number: BR-BRISTOL-MYERS SQUIBB COMPANY-15845464

PATIENT
  Age: 51 Year
  Sex: Male
  Weight: 115 kg

DRUGS (8)
  1. RUBRANOVA INJ [Suspect]
     Indication: VITAMIN B12 DEFICIENCY
     Dosage: RUBRANOVA INJ5000MCG(TOTALLY 4 INJECTIONS)1DOSE 4TH INJECTN ON 03JUN2011 3DOSETOTAL(15000MCG)
     Route: 030
     Dates: start: 20110501, end: 20110601
  2. SOLU-CORTEF [Suspect]
  3. DIPROSPAN [Suspect]
  4. PHENERGAN [Suspect]
  5. FOLIC ACID [Concomitant]
  6. EPINEPHRINE [Suspect]
     Indication: ANAPHYLACTIC SHOCK
  7. IRON POLYMALTOSE [Concomitant]
  8. CORTISONE ACETATE [Suspect]

REACTIONS (4)
  - ANAPHYLACTIC SHOCK [None]
  - DRUG INEFFECTIVE [None]
  - LIVER INJURY [None]
  - CARDIAC ARREST [None]
